FAERS Safety Report 16252518 (Version 4)
Quarter: 2019Q3

REPORT INFORMATION
  Report Type: Report from Study
  Country: ES (occurrence: ES)
  Receive Date: 20190429
  Receipt Date: 20190805
  Transmission Date: 20191004
  Serious: Yes (Death, Hospitalization, Other)
  Sender: FDA-Public Use
  Company Number: ES-GILEAD-2019-0399129

PATIENT
  Sex: Male

DRUGS (7)
  1. VALCYTE [Concomitant]
     Active Substance: VALGANCICLOVIR HYDROCHLORIDE
     Indication: ANTIVIRAL PROPHYLAXIS
     Dosage: UNK
     Dates: start: 20170331, end: 201704
  2. SEPTRIN [Concomitant]
     Active Substance: SULFAMETHOXAZOLE\TRIMETHOPRIM
     Indication: ANTIFUNGAL PROPHYLAXIS
     Dosage: UNK
     Dates: start: 20170331, end: 201704
  3. IDELALISIB [Suspect]
     Active Substance: IDELALISIB
     Indication: B-CELL LYMPHOMA
     Dosage: 150 MG, QD
     Route: 048
     Dates: start: 20161110, end: 20170214
  4. ATROVENT [Concomitant]
     Active Substance: IPRATROPIUM BROMIDE
     Indication: BRONCHOSPASM
     Dosage: UNK
     Dates: start: 20170331, end: 201704
  5. NIVESTIM [Concomitant]
     Active Substance: FILGRASTIM
     Indication: PROPHYLAXIS
  6. NIVESTIM [Concomitant]
     Active Substance: FILGRASTIM
     Indication: NEUTROPENIA
     Dosage: UNK
     Dates: start: 20170331, end: 20170402
  7. LOPERAMIDE [Concomitant]
     Active Substance: LOPERAMIDE
     Indication: DIARRHOEA
     Dosage: UNK
     Route: 048
     Dates: start: 20170214, end: 20170225

REACTIONS (4)
  - Neutrophil count decreased [Not Recovered/Not Resolved]
  - Diarrhoea [Unknown]
  - Colitis [Recovered/Resolved]
  - Death [Fatal]

NARRATIVE: CASE EVENT DATE: 20170214
